FAERS Safety Report 8548937 (Version 2)
Quarter: 2013Q1

REPORT INFORMATION
  Report Type: Spontaneous
  Country: US (occurrence: US)
  Receive Date: 20120507
  Receipt Date: 20130125
  Transmission Date: 20140127
  Serious: No
  Sender: FDA-Public Use
  Company Number: US-ASTRAZENECA-2012SE13451

PATIENT
  Sex: Female

DRUGS (3)
  1. VIMOVO [Suspect]
     Indication: RHEUMATOID ARTHRITIS
     Route: 048
  2. VIMOVO [Suspect]
     Indication: OSTEOARTHRITIS
     Route: 048
  3. ACIPHEX [Concomitant]
     Indication: GASTROOESOPHAGEAL REFLUX DISEASE

REACTIONS (7)
  - Fibromyalgia [Unknown]
  - Gastric disorder [Unknown]
  - Fluid retention [Unknown]
  - Sensation of heaviness [Unknown]
  - Weight increased [Unknown]
  - Abdominal discomfort [Unknown]
  - Abdominal discomfort [Unknown]
